FAERS Safety Report 9611031 (Version 2)
Quarter: 2013Q4

REPORT INFORMATION
  Report Type: Spontaneous
  Country: DK (occurrence: DK)
  Receive Date: 20131009
  Receipt Date: 20131018
  Transmission Date: 20140711
  Serious: Yes (Other)
  Sender: FDA-Public Use
  Company Number: DK-GLAXOSMITHKLINE-B0928663A

PATIENT
  Age: 81 Year
  Sex: Female

DRUGS (8)
  1. ALKERAN [Suspect]
     Indication: PLASMA CELL MYELOMA
     Dosage: 8MG PER DAY
     Route: 048
     Dates: start: 200701
  2. ZOMETA [Suspect]
     Indication: PLASMA CELL MYELOMA
     Dosage: 4MG MONTHLY
     Route: 042
     Dates: start: 200612, end: 200812
  3. PREDNISOLON [Suspect]
     Indication: ARTHRITIS
     Dosage: 100MG PER DAY
     Route: 048
     Dates: start: 200701
  4. PREDNISOLONE [Suspect]
     Indication: ARTHRITIS
     Route: 048
     Dates: start: 200811
  5. HJERTEMAGNYL [Concomitant]
  6. AMLODIPINE [Concomitant]
  7. SIMVASTATIN [Concomitant]
  8. VITAMIN D [Concomitant]

REACTIONS (1)
  - Osteonecrosis of jaw [Not Recovered/Not Resolved]
